FAERS Safety Report 4854557-7 (Version None)
Quarter: 2005Q4

REPORT INFORMATION
  Report Type: 
  Country: None (occurrence: None)
  Receive Date: 20051215
  Receipt Date: 20051202
  Transmission Date: 20060501
  Serious: Yes (Hospitalization)
  Sender: FDA-Public Use
  Company Number: CA-ROCHE-427175

PATIENT
  Age: 64 Year
  Sex: Male
  Weight: 75 kg

DRUGS (3)
  1. CAPECITABINE [Suspect]
     Indication: COLON CANCER
     Dosage: ON DAY 1 THROUGH UNTIL DAY 14 EVERY 3 WEEKS.
     Route: 048
     Dates: start: 20040218
  2. BLINDED CELECOXIB [Suspect]
     Indication: COLON CANCER
     Route: 048
     Dates: start: 20040218
  3. IRINOTECAN HYDROCHLORIDE [Suspect]
     Indication: COLON CANCER
     Dosage: ON WEEK ONE OF A THREE WEEK CYCLE.
     Route: 042
     Dates: start: 20040218

REACTIONS (5)
  - ABDOMINAL DISCOMFORT [None]
  - DIARRHOEA [None]
  - INTESTINAL OBSTRUCTION [None]
  - NAUSEA [None]
  - VOMITING [None]
